FAERS Safety Report 5507608-0 (Version None)
Quarter: 2007Q4

REPORT INFORMATION
  Report Type: 
  Country: None (occurrence: None)
  Receive Date: 20071102
  Receipt Date: 20071029
  Transmission Date: 20080405
  Serious: Yes (Life-Threatening, Hospitalization)
  Sender: FDA-Public Use
  Company Number: 2007SP021881

PATIENT
  Age: 56 Year
  Sex: Male

DRUGS (9)
  1. REBETOL [Suspect]
     Indication: HEPATITIS C
     Dosage: 600 MG,QW;PO, 1200 MG/QW;PO,200 MG,TIW;PO, 200 MG,BIW;PO
     Route: 048
     Dates: start: 20070201, end: 20070401
  2. REBETOL [Suspect]
     Indication: HEPATITIS C
     Dosage: 600 MG,QW;PO, 1200 MG/QW;PO,200 MG,TIW;PO, 200 MG,BIW;PO
     Route: 048
     Dates: start: 20070401, end: 20070801
  3. REBETOL [Suspect]
     Indication: HEPATITIS C
     Dosage: 600 MG,QW;PO, 1200 MG/QW;PO,200 MG,TIW;PO, 200 MG,BIW;PO
     Route: 048
     Dates: start: 20070801, end: 20070901
  4. REBETOL [Suspect]
     Indication: HEPATITIS C
     Dosage: 600 MG,QW;PO, 1200 MG/QW;PO,200 MG,TIW;PO, 200 MG,BIW;PO
     Route: 048
     Dates: start: 20070901, end: 20070924
  5. PEGASYS [Suspect]
     Indication: HEPATITIS C
     Dosage: 135 MCG;QW;SC
     Route: 058
     Dates: start: 20070201, end: 20070924
  6. KARDEGIC [Concomitant]
  7. VALSARTAN [Concomitant]
  8. CELECTOL [Concomitant]
  9. CALTRATE [Concomitant]

REACTIONS (2)
  - ANAEMIA [None]
  - ASTHENIA [None]
